FAERS Safety Report 9865201 (Version 1)
Quarter: 2014Q1

REPORT INFORMATION
  Report Type: Spontaneous
  Country: GB (occurrence: GB)
  Receive Date: 20140203
  Receipt Date: 20140203
  Transmission Date: 20141002
  Serious: Yes (Disabling)
  Sender: FDA-Public Use
  Company Number: PHHY2014GB009692

PATIENT
  Age: 60 Year
  Sex: Male
  Weight: 82.55 kg

DRUGS (13)
  1. SIMVASTATIN [Suspect]
     Indication: HYPERCHOLESTEROLAEMIA
     Route: 048
     Dates: end: 20100404
  2. ROSUVASTATIN [Suspect]
     Indication: HYPERCHOLESTEROLAEMIA
  3. INSULIN GLULISINE [Concomitant]
     Dosage: 3 DF, UNK
  4. ASPIRIN [Concomitant]
     Dosage: 75 MG, QD
  5. METFORMIN [Concomitant]
     Dosage: 1000 MG, BID
  6. INSULIN GLARGINE [Concomitant]
     Dosage: 30 IU, QD, INJECTION EVENING
  7. CO-CODAMOL [Concomitant]
  8. IBUPROFEN [Concomitant]
     Dosage: 600 MG, UNK
  9. OMEPRAZOLE [Concomitant]
     Dosage: 20 MG, UNK
     Dates: start: 201311
  10. LAXIDO                             /06401201/ [Concomitant]
     Indication: GASTROINTESTINAL DISORDER
  11. VOLTAROL [Concomitant]
     Indication: ARTHRALGIA
  12. DEEP HEAT                          /00735901/ [Concomitant]
     Indication: ARTHRALGIA
  13. GREEN LIPPED MUSSEL [Concomitant]
     Dosage: 500 MG, UNK

REACTIONS (2)
  - Amnesia [Recovered/Resolved]
  - Muscle atrophy [Recovered/Resolved]
